FAERS Safety Report 8776467 (Version 3)
Quarter: 2012Q4

REPORT INFORMATION
  Report Type: 
  Country: CA (occurrence: CA)
  Receive Date: 20120910
  Receipt Date: 20121004
  Transmission Date: 20130627
  Serious: Yes (Disabling)
  Sender: FDA-Public Use
  Company Number: PHHY2012CA075673

PATIENT
  Sex: Female

DRUGS (4)
  1. CLOZARIL [Suspect]
     Indication: INFECTION
     Dosage: 350 mg
     Route: 048
     Dates: start: 2006
  2. CLOZARIL [Suspect]
     Indication: ENCEPHALOPATHY
     Route: 048
     Dates: start: 20120711, end: 20120802
  3. BENZTROPINE MESYLATE [Concomitant]
     Dosage: 1 mg, BID
  4. SERTRALINE [Concomitant]
     Dosage: 100 mg, BID

REACTIONS (8)
  - Choreoathetosis [Not Recovered/Not Resolved]
  - Hypoxic-ischaemic encephalopathy [Not Recovered/Not Resolved]
  - Abnormal behaviour [Not Recovered/Not Resolved]
  - Fall [Not Recovered/Not Resolved]
  - Memory impairment [Not Recovered/Not Resolved]
  - Orthostatic hypotension [Not Recovered/Not Resolved]
  - Somnolence [Not Recovered/Not Resolved]
  - Drug ineffective [Not Recovered/Not Resolved]
